FAERS Safety Report 21286912 (Version 2)
Quarter: 2022Q3

REPORT INFORMATION
  Report Type: Report from Study
  Country: JP (occurrence: JP)
  Receive Date: 20220902
  Receipt Date: 20220909
  Transmission Date: 20221027
  Serious: Yes (Death, Hospitalization)
  Sender: FDA-Public Use
  Company Number: JP-ALNYLAM PHARMACEUTICALS, INC.-ALN-2021-001823

PATIENT

DRUGS (18)
  1. ONPATTRO [Suspect]
     Active Substance: PATISIRAN SODIUM
     Indication: Hereditary neuropathic amyloidosis
     Dosage: 13.5 MILLIGRAM, Q3W
     Route: 041
     Dates: start: 20210330, end: 20210420
  2. ONPATTRO [Suspect]
     Active Substance: PATISIRAN SODIUM
     Dosage: 12 MILLIGRAM, Q3W
     Route: 041
     Dates: start: 20210511, end: 20220823
  3. FAMOTIDINE [Concomitant]
     Active Substance: FAMOTIDINE
     Indication: Prophylaxis
     Dosage: 20 MILLIGRAM, QD
     Route: 041
     Dates: start: 20210330, end: 20220823
  4. POLARAMINE [Concomitant]
     Active Substance: DEXCHLORPHENIRAMINE MALEATE
     Indication: Prophylaxis
     Dosage: 1 MILLILITER, QD
     Route: 041
     Dates: start: 20210330, end: 20220823
  5. DECADRON [Concomitant]
     Active Substance: DEXAMETHASONE
     Indication: Prophylaxis
     Dosage: 2 MILLILITER, QD
     Route: 041
     Dates: start: 20210330, end: 20220823
  6. DECADRON [Concomitant]
     Active Substance: DEXAMETHASONE
     Indication: Prophylaxis
     Dosage: 1 MILLILITER, QD
     Route: 041
     Dates: start: 20210330, end: 20220823
  7. CALONAL [Concomitant]
     Active Substance: ACETAMINOPHEN
     Indication: Prophylaxis
     Dosage: 500 MILLIGRAM, Q3W
     Route: 048
     Dates: start: 20210330, end: 20220823
  8. VITAMINS [Concomitant]
     Active Substance: VITAMINS
     Indication: Vitamin supplementation
     Dosage: 1 GRAM, QD
     Route: 048
     Dates: start: 20210330
  9. ZETIA [Concomitant]
     Active Substance: EZETIMIBE
     Indication: Dyslipidaemia
     Dosage: 10 MILLIGRAM, QD
     Route: 048
  10. LYRICA [Concomitant]
     Active Substance: PREGABALIN
     Indication: Neuropathy peripheral
     Dosage: 50 MILLIGRAM, QD
     Route: 048
  11. HERBALS [Concomitant]
     Active Substance: HERBALS
     Indication: Feeling cold
     Dosage: 2.5 GRAM, TID
     Route: 048
  12. ACETAMINOPHEN [Concomitant]
     Active Substance: ACETAMINOPHEN
     Indication: Neuralgia
     Dosage: 200 MILLIGRAM, QD
     Route: 065
  13. MIYA-BM [Concomitant]
     Active Substance: CLOSTRIDIUM BUTYRICUM SPORES STRAIN M-55
     Indication: Enterocolitis
     Dosage: 1 TABLET, BID
     Route: 048
  14. MAGNESIUM OXIDE [Concomitant]
     Active Substance: MAGNESIUM OXIDE
     Indication: Constipation
     Dosage: 250 MILLIGRAM, BID
     Route: 065
  15. AZOSEMIDE [Concomitant]
     Active Substance: AZOSEMIDE
     Indication: Oedema
     Dosage: 15 MILLIGRAM, QD
     Route: 048
  16. ZEFNART [Concomitant]
     Indication: Tinea pedis
     Dosage: 20 GRAM, PRN
  17. HERBALS [Concomitant]
     Active Substance: HERBALS
     Indication: Oedema
     Dosage: 2.5 GRAM, TID
     Route: 048
  18. HEPARINOID [Concomitant]
     Indication: Xeroderma
     Dosage: 50 GRAM, PRN

REACTIONS (2)
  - Disease progression [Fatal]
  - Pneumonia aspiration [Recovered/Resolved]

NARRATIVE: CASE EVENT DATE: 20210605
